FAERS Safety Report 23431681 (Version 3)
Quarter: 2024Q1

REPORT INFORMATION
  Report Type: Report from Study
  Country: CO (occurrence: CO)
  Receive Date: 20240123
  Receipt Date: 20240315
  Transmission Date: 20240409
  Serious: Yes (Hospitalization, Other)
  Sender: FDA-Public Use
  Company Number: CO-TAKEDA-2023TUS089496

PATIENT
  Age: 35 Year
  Sex: Female
  Weight: 59 kg

DRUGS (1)
  1. VEDOLIZUMAB [Suspect]
     Active Substance: VEDOLIZUMAB
     Indication: Crohn^s disease
     Dosage: 300 MILLIGRAM
     Route: 042
     Dates: start: 20230325

REACTIONS (15)
  - Intestinal ulcer [Unknown]
  - Anaemia [Unknown]
  - Opportunistic infection [Unknown]
  - Lymphadenopathy [Unknown]
  - Weight increased [Unknown]
  - Pulmonary mass [Unknown]
  - Cardiomegaly [Unknown]
  - Anal fistula [Unknown]
  - Diarrhoea [Unknown]
  - Vasculitis [Unknown]
  - Dizziness [Recovering/Resolving]
  - Abdominal distension [Unknown]
  - Anal fissure [Unknown]
  - Arthralgia [Unknown]
  - Headache [Recovering/Resolving]

NARRATIVE: CASE EVENT DATE: 20230909
